FAERS Safety Report 9851405 (Version 4)
Quarter: 2014Q1

REPORT INFORMATION
  Report Type: Spontaneous
  Country: CA (occurrence: CA)
  Receive Date: 20140129
  Receipt Date: 20140227
  Transmission Date: 20141002
  Serious: Yes (Other)
  Sender: FDA-Public Use
  Company Number: CA-ROCHE-1340547

PATIENT
  Age: 71 Year
  Sex: Female

DRUGS (4)
  1. XOLAIR [Suspect]
     Indication: ASTHMA
     Route: 058
     Dates: start: 20130522
  2. XOLAIR [Suspect]
     Route: 058
     Dates: start: 20130611
  3. XOLAIR [Suspect]
     Route: 058
     Dates: start: 20130807
  4. XOLAIR [Suspect]
     Route: 058
     Dates: start: 20130904

REACTIONS (12)
  - Cardiac disorder [Unknown]
  - Cardiac murmur [Unknown]
  - Wheezing [Unknown]
  - Dyspnoea [Unknown]
  - Cough [Recovering/Resolving]
  - Blood pressure increased [Not Recovered/Not Resolved]
  - Middle insomnia [Unknown]
  - Respiratory rate increased [Unknown]
  - Decreased appetite [Unknown]
  - Weight decreased [Unknown]
  - Fatigue [Unknown]
  - Drug ineffective [Unknown]
